FAERS Safety Report 7993544-7 (Version None)
Quarter: 2011Q4

REPORT INFORMATION
  Report Type: 
  Country: None (occurrence: None)
  Receive Date: 20111219
  Receipt Date: 20111213
  Transmission Date: 20120403
  Serious: Yes (Death)
  Sender: FDA-Public Use
  Company Number: FR-ASTRAZENECA-2011SE75631

PATIENT
  Sex: Male

DRUGS (13)
  1. NEXIUM [Suspect]
     Route: 048
     Dates: start: 20110530, end: 20110610
  2. FOSCARNET SODIUM [Suspect]
     Dates: start: 20110601, end: 20110602
  3. FOSCARNET SODIUM [Suspect]
     Dates: start: 20110606, end: 20110608
  4. FOSCARNET SODIUM [Suspect]
     Dates: start: 20110611, end: 20110611
  5. ACUPAN [Concomitant]
     Dates: start: 20110606, end: 20110609
  6. ROCEPHIN [Suspect]
     Route: 042
     Dates: start: 20110610, end: 20110611
  7. NOZINAN [Suspect]
     Dates: start: 20110607, end: 20110610
  8. CORTANSYL [Concomitant]
  9. UMULINE [Concomitant]
     Dates: start: 20110530, end: 20110607
  10. FLAGYL [Suspect]
     Dates: start: 20110529, end: 20110608
  11. FOSCARNET SODIUM [Suspect]
     Dates: start: 20110604, end: 20110604
  12. ROCEPHIN [Suspect]
     Route: 042
     Dates: start: 20110529, end: 20110608
  13. SOLU-MEDROL [Suspect]
     Route: 042
     Dates: start: 20110530, end: 20110608

REACTIONS (1)
  - TOXIC EPIDERMAL NECROLYSIS [None]
